FAERS Safety Report 23512946 (Version 1)
Quarter: 2024Q1

REPORT INFORMATION
  Report Type: Spontaneous
  Country: FR (occurrence: FR)
  Receive Date: 20240212
  Receipt Date: 20240212
  Transmission Date: 20240409
  Serious: Yes (Hospitalization, Other)
  Sender: FDA-Public Use
  Company Number: None

PATIENT
  Age: 78 Year
  Sex: Male

DRUGS (10)
  1. IVERMECTIN [Suspect]
     Active Substance: IVERMECTIN
     Indication: Parasitic infection prophylaxis
     Dosage: 15 MILLIGRAM, ONCE
     Route: 048
     Dates: start: 20230907, end: 20230907
  2. PIPERACILLIN SODIUM\TAZOBACTAM SODIUM [Suspect]
     Active Substance: PIPERACILLIN SODIUM\TAZOBACTAM SODIUM
     Indication: Antibiotic therapy
     Dosage: 24 GRAM, ONCE
     Route: 042
     Dates: start: 20230904, end: 20230906
  3. IOVERSOL [Suspect]
     Active Substance: IOVERSOL
     Indication: Computerised tomogram
     Route: 042
     Dates: start: 20230906, end: 20230906
  4. AMBISOME [Suspect]
     Active Substance: AMPHOTERICIN B
     Indication: Aspergillus infection
     Dosage: 200 MILLIGRAM, QD
     Route: 042
     Dates: start: 20230908, end: 20230912
  5. BACTRIM [Suspect]
     Active Substance: SULFAMETHOXAZOLE\TRIMETHOPRIM
     Indication: Antibiotic therapy
     Route: 042
     Dates: start: 20230908, end: 20230909
  6. ETHAMBUTOL HYDROCHLORIDE [Concomitant]
     Active Substance: ETHAMBUTOL HYDROCHLORIDE
     Dosage: 1400 MILLIGRAM, QD
     Route: 042
     Dates: start: 20230907
  7. MIDAZOLAM [Concomitant]
     Active Substance: MIDAZOLAM
     Dosage: VARIABLE
     Route: 042
     Dates: start: 20230908, end: 20230926
  8. ISONIAZID [Concomitant]
     Active Substance: ISONIAZID
     Dosage: 350 MILLIGRAM, QD
     Route: 042
     Dates: start: 20230907
  9. FENTANYL [Concomitant]
     Active Substance: FENTANYL\FENTANYL CITRATE
     Dosage: VARIABLE
     Route: 042
     Dates: start: 20230908, end: 20230926
  10. RIFAMPIN [Concomitant]
     Active Substance: RIFAMPIN
     Dosage: 1050 MILLIGRAM, QD
     Route: 042
     Dates: start: 20230907, end: 20230930

REACTIONS (1)
  - Acute kidney injury [Recovering/Resolving]

NARRATIVE: CASE EVENT DATE: 20230909
